FAERS Safety Report 16945531 (Version 1)
Quarter: 2019Q4

REPORT INFORMATION
  Report Type: Spontaneous
  Country: US (occurrence: US)
  Receive Date: 20190830
  Receipt Date: 20190830
  Transmission Date: 20200122
  Serious: Yes (Hospitalization)
  Sender: FDA-Public Use
  Company Number: None

PATIENT
  Age: 48 Year
  Sex: Female

DRUGS (21)
  1. ZOFRAN [Concomitant]
     Active Substance: ONDANSETRON HYDROCHLORIDE
  2. LASIX [Concomitant]
     Active Substance: FUROSEMIDE
  3. SIMVASTATIN. [Concomitant]
     Active Substance: SIMVASTATIN
  4. NARCAN [Concomitant]
     Active Substance: NALOXONE HYDROCHLORIDE
  5. DOCUSATE SODIUM. [Concomitant]
     Active Substance: DOCUSATE SODIUM
  6. NORCO [Concomitant]
     Active Substance: ACETAMINOPHEN\HYDROCODONE BITARTRATE
  7. SILDENAFIL. [Concomitant]
     Active Substance: SILDENAFIL
  8. SPIRONOLACTONE. [Concomitant]
     Active Substance: SPIRONOLACTONE
  9. TRAZODONE [Concomitant]
     Active Substance: TRAZODONE HYDROCHLORIDE
  10. POTASSIUM CHLORIDE. [Concomitant]
     Active Substance: POTASSIUM CHLORIDE
  11. PANTOPRAZOLE [Concomitant]
     Active Substance: PANTOPRAZOLE
  12. FLUOXETINE [Concomitant]
     Active Substance: FLUOXETINE HYDROCHLORIDE
  13. FERROUS SULFATE. [Concomitant]
     Active Substance: FERROUS SULFATE
  14. REMODULIN [Concomitant]
     Active Substance: TREPROSTINIL
  15. POLYETHYLENE GLYCOL [Concomitant]
     Active Substance: POLYETHYLENE GLYCOLS
  16. MIDODRINE [Concomitant]
     Active Substance: MIDODRINE
  17. AMBRISENTAN  TABLETS 30/BO: 10MG [Suspect]
     Active Substance: AMBRISENTAN
     Indication: PULMONARY ARTERIAL HYPERTENSION
     Route: 048
     Dates: start: 201408
  18. TRAMADOL. [Concomitant]
     Active Substance: TRAMADOL
  19. FUNGOID TINCTURE [Concomitant]
     Active Substance: MICONAZOLE NITRATE
  20. PREDNISONE. [Concomitant]
     Active Substance: PREDNISONE
  21. MVI [Concomitant]
     Active Substance: VITAMINS

REACTIONS (8)
  - Hyponatraemia [None]
  - Cardiac failure congestive [None]
  - Abdominal pain [None]
  - Acute kidney injury [None]
  - Chest pain [None]
  - Dyspnoea [None]
  - Abdominal distension [None]
  - Cardiac failure acute [None]

NARRATIVE: CASE EVENT DATE: 20190801
